FAERS Safety Report 7513758-X (Version None)
Quarter: 2011Q2

REPORT INFORMATION
  Report Type: 
  Country: None (occurrence: None)
  Receive Date: 20110531
  Receipt Date: 20110519
  Transmission Date: 20111010
  Serious: Yes (Other)
  Sender: FDA-Public Use
  Company Number: DE-BAYER-2011-034219

PATIENT
  Age: 33 Year
  Sex: Female

DRUGS (1)
  1. YASMIN [Suspect]
     Indication: ORAL CONTRACEPTION
     Dosage: UNK
     Dates: start: 19950101, end: 20110101

REACTIONS (19)
  - ANXIETY [None]
  - PSYCHIATRIC SYMPTOM [None]
  - ASTHENIA [None]
  - LISTLESS [None]
  - AFFECT LABILITY [None]
  - MENTAL DISORDER [None]
  - SUICIDAL IDEATION [None]
  - AFFECTIVE DISORDER [None]
  - BURNOUT SYNDROME [None]
  - DISTURBANCE IN ATTENTION [None]
  - PANIC REACTION [None]
  - CRYING [None]
  - MENTAL STATUS CHANGES [None]
  - TENSION [None]
  - FATIGUE [None]
  - APATHY [None]
  - DISSOCIATIVE FUGUE [None]
  - RESTLESSNESS [None]
  - DEPRESSION [None]
